FAERS Safety Report 8589490-0 (Version None)
Quarter: 2012Q3

REPORT INFORMATION
  Report Type: 
  Country: None (occurrence: None)
  Receive Date: 20120813
  Receipt Date: 20120807
  Transmission Date: 20120928
  Serious: Yes (Hospitalization, Other)
  Sender: FDA-Public Use
  Company Number: ES-ELI_LILLY_AND_COMPANY-ES201208002564

PATIENT
  Sex: Male
  Weight: 70 kg

DRUGS (2)
  1. FORTEO [Suspect]
     Indication: OSTEOPOROSIS
     Dosage: 20 UG, QD
     Route: 058
     Dates: start: 20120622
  2. NOLOTIL [Concomitant]
     Indication: PAIN
     Dosage: UNK, PRN
     Dates: start: 20120807

REACTIONS (1)
  - MEDICAL DEVICE REMOVAL [None]
